FAERS Safety Report 6448531-7 (Version None)
Quarter: 2009Q4

REPORT INFORMATION
  Report Type: 
  Country: None (occurrence: None)
  Receive Date: 20091120
  Receipt Date: 20091104
  Transmission Date: 20100525
  Serious: Yes (Other)
  Sender: FDA-Public Use
  Company Number: US-SANOFI-AVENTIS-2009SA001368

PATIENT
  Age: 73 Year
  Sex: Female

DRUGS (8)
  1. LANTUS [Suspect]
     Indication: TYPE 2 DIABETES MELLITUS
     Dosage: DOSE:15 UNIT(S)
     Route: 058
     Dates: start: 20070101
  2. OPTICLICK [Suspect]
     Indication: TYPE 2 DIABETES MELLITUS
     Dates: start: 20060101
  3. CLONIDINE [Concomitant]
     Indication: BLOOD PRESSURE
     Route: 065
  4. METOPROLOL [Concomitant]
     Route: 065
  5. PLAVIX [Concomitant]
     Route: 065
  6. LISINOPRIL [Concomitant]
     Route: 065
  7. VITAMINS NOS [Concomitant]
     Route: 065
  8. STOOL SOFTENER [Concomitant]
     Route: 065

REACTIONS (1)
  - MYOCARDIAL INFARCTION [None]
